FAERS Safety Report 11699092 (Version 2)
Quarter: 2015Q4

REPORT INFORMATION
  Report Type: Spontaneous
  Country: US (occurrence: US)
  Receive Date: 20151104
  Receipt Date: 20151104
  Transmission Date: 20160304
  Serious: No
  Sender: FDA-Public Use
  Company Number: PHEH2015US022526

PATIENT
  Age: 43 Year
  Sex: Male

DRUGS (2)
  1. PROMETHAZINE [Suspect]
     Active Substance: PROMETHAZINE\PROMETHAZINE HYDROCHLORIDE
     Indication: PROPHYLAXIS OF NAUSEA AND VOMITING
     Dosage: UNK UNK, PRN (AS NEEDED)
     Route: 048
     Dates: start: 20151029
  2. GLEEVEC [Suspect]
     Active Substance: IMATINIB MESYLATE
     Indication: CHRONIC MYELOID LEUKAEMIA
     Dosage: UNK UNK, QD (ONCE DAILY)
     Route: 048
     Dates: start: 20151028

REACTIONS (3)
  - Fall [Unknown]
  - Dry mouth [Recovering/Resolving]
  - Self-medication [None]

NARRATIVE: CASE EVENT DATE: 20151101
